FAERS Safety Report 7862726-7 (Version None)
Quarter: 2011Q4

REPORT INFORMATION
  Report Type: 
  Country: None (occurrence: None)
  Receive Date: 20111027
  Receipt Date: 20101112
  Transmission Date: 20120403
  Serious: No
  Sender: FDA-Public Use
  Company Number: US-AMGEN-USASP2010004772

PATIENT

DRUGS (8)
  1. DIOVAN [Concomitant]
     Dosage: 40 MG, UNK
  2. LASIX [Concomitant]
     Dosage: 20 MG, UNK
  3. LORTAB [Concomitant]
     Dosage: 2.5 UNK, UNK
  4. TRAMADOL HCL [Concomitant]
     Dosage: 50 MG, UNK
  5. ENBREL [Suspect]
     Indication: PRODUCT USED FOR UNKNOWN INDICATION
     Dosage: 50 MG, 2 TIMES/WK
     Route: 058
  6. TOPROL-XL [Concomitant]
     Dosage: 25 MG, UNK
  7. METHOTREXATE [Concomitant]
     Dosage: 2.5 MG, UNK
  8. TYLENOL (CAPLET) [Concomitant]
     Dosage: 500 MG, UNK

REACTIONS (1)
  - INJECTION SITE PRURITUS [None]
